FAERS Safety Report 9585142 (Version 1)
Quarter: 2013Q4

REPORT INFORMATION
  Report Type: Spontaneous
  Country: US (occurrence: US)
  Receive Date: 20131002
  Receipt Date: 20131002
  Transmission Date: 20140711
  Serious: No
  Sender: FDA-Public Use
  Company Number: US-AMGEN-USASP2013062944

PATIENT
  Age: 58 Year
  Sex: Male

DRUGS (10)
  1. ENBREL [Suspect]
     Indication: PRODUCT USED FOR UNKNOWN INDICATION
     Dosage: 50 MG, QWK
     Route: 058
  2. SEROQUEL [Concomitant]
     Dosage: 100 MG, UNK
  3. FOLIC ACID [Concomitant]
     Dosage: 20 MG, UNK
  4. CLONAZEPAM [Concomitant]
     Dosage: 0.5 MG, UNK
  5. METHOTREXATE [Concomitant]
     Dosage: 2.5 MG, UNK
  6. FLURAZEPAM [Concomitant]
     Dosage: 15 MG, UNK
  7. SERTRALINE [Concomitant]
     Dosage: 100 MG, UNK
  8. VITAMIN D                          /00107901/ [Concomitant]
     Dosage: 1000 UNIT, UNK
  9. PROPECIA [Concomitant]
     Dosage: UNK
  10. IMITREX                            /01044801/ [Concomitant]
     Dosage: 100 MG, UNK

REACTIONS (2)
  - Rash pruritic [Unknown]
  - Rash papular [Unknown]
